FAERS Safety Report 9528457 (Version 1)
Quarter: 2013Q1

REPORT INFORMATION
  Report Type: Spontaneous
  Country: US (occurrence: None)
  Receive Date: 20130314
  Receipt Date: 20130314
  Transmission Date: 20140127
  Serious: No
  Sender: FDA-Public Use
  Company Number: 1301USA011622

PATIENT
  Sex: 0

DRUGS (3)
  1. VICTRELIS [Suspect]
     Indication: HEPATITIS C
  2. PEGASYS (PEGINTERFERON ALFA-2A) [Concomitant]
  3. RIBAVIRIN (RIBAVIRIN) [Concomitant]

REACTIONS (1)
  - Weight increased [None]
